FAERS Safety Report 10314042 (Version 3)
Quarter: 2014Q4

REPORT INFORMATION
  Report Type: Spontaneous
  Country: IT (occurrence: FR)
  Receive Date: 20140718
  Receipt Date: 20141031
  Transmission Date: 20150528
  Serious: Yes (Hospitalization)
  Sender: FDA-Public Use
  Company Number: FR-FRI-1000069141

PATIENT
  Age: 69 Year
  Sex: Female
  Weight: 57 kg

DRUGS (4)
  1. VALIUM [Suspect]
     Active Substance: DIAZEPAM
     Dosage: 600 MG
     Route: 048
     Dates: start: 20140529, end: 20140529
  2. LAROXYL [Suspect]
     Active Substance: AMITRIPTYLINE
     Dosage: 1500 MG
     Route: 048
     Dates: start: 20140529, end: 20140529
  3. NEBIVOLOL [Suspect]
     Active Substance: NEBIVOLOL
     Indication: HYPERTENSION
     Dosage: 400 MG
     Route: 048
     Dates: start: 20140529, end: 20140529
  4. PRADAXA [Suspect]
     Active Substance: DABIGATRAN ETEXILATE MESYLATE
     Indication: CEREBROVASCULAR ACCIDENT
     Dosage: 9000 MG
     Route: 048
     Dates: start: 20140529, end: 20140529

REACTIONS (10)
  - Mitral valve incompetence [None]
  - Suicide attempt [Recovered/Resolved]
  - Overdose [Recovered/Resolved]
  - Coma [Recovered/Resolved]
  - Oedema peripheral [None]
  - Telangiectasia [None]
  - Lung disorder [None]
  - Bradycardia [Recovered/Resolved]
  - Aortic valve incompetence [None]
  - Pneumonia aspiration [None]

NARRATIVE: CASE EVENT DATE: 20140529
